FAERS Safety Report 19676012 (Version 11)
Quarter: 2025Q2

REPORT INFORMATION
  Report Type: Spontaneous
  Country: BR (occurrence: BR)
  Receive Date: 20210809
  Receipt Date: 20250513
  Transmission Date: 20250716
  Serious: Yes (Other)
  Sender: BIOGEN
  Company Number: BR-BIOGEN-2021BI01037956

PATIENT
  Sex: Male
  Weight: 82 kg

DRUGS (16)
  1. AVONEX [Suspect]
     Active Substance: INTERFERON BETA-1A
     Indication: Tropical spastic paresis
     Route: 050
     Dates: start: 201709
  2. AVONEX [Suspect]
     Active Substance: INTERFERON BETA-1A
     Route: 050
     Dates: start: 2017, end: 2020
  3. AVONEX [Suspect]
     Active Substance: INTERFERON BETA-1A
     Route: 050
     Dates: start: 2020
  4. AVONEX [Suspect]
     Active Substance: INTERFERON BETA-1A
     Route: 050
     Dates: start: 201709
  5. AVONEX [Suspect]
     Active Substance: INTERFERON BETA-1A
     Route: 050
     Dates: start: 20170901
  6. AVONEX [Suspect]
     Active Substance: INTERFERON BETA-1A
     Route: 050
     Dates: start: 2017
  7. AVONEX [Suspect]
     Active Substance: INTERFERON BETA-1A
     Route: 050
     Dates: start: 2017, end: 202501
  8. LORAZEPAM [Concomitant]
     Active Substance: LORAZEPAM
     Indication: Anxiety
     Route: 050
  9. LORAZEPAM [Concomitant]
     Active Substance: LORAZEPAM
     Route: 050
     Dates: start: 2004
  10. LORAZEPAM [Concomitant]
     Active Substance: LORAZEPAM
     Route: 050
  11. ALPRAZOLAM [Concomitant]
     Active Substance: ALPRAZOLAM
     Indication: Anxiety
     Route: 050
  12. TRAZODONE HYDROCHLORIDE [Concomitant]
     Active Substance: TRAZODONE HYDROCHLORIDE
     Indication: Depression
     Route: 050
  13. TRAZODONE HYDROCHLORIDE [Concomitant]
     Active Substance: TRAZODONE HYDROCHLORIDE
     Route: 050
  14. DIPYRONE [Concomitant]
     Active Substance: DIPYRONE
     Indication: Premedication
     Route: 050
  15. TYLENOL [Concomitant]
     Active Substance: ACETAMINOPHEN
     Indication: Premedication
     Route: 050
     Dates: start: 20240418
  16. LYRICA [Concomitant]
     Active Substance: PREGABALIN
     Indication: Neuropathy peripheral
     Route: 050
     Dates: start: 2012

REACTIONS (32)
  - Myasthenia gravis [Not Recovered/Not Resolved]
  - Suicidal ideation [Unknown]
  - Faecaloma [Unknown]
  - Ankle fracture [Not Recovered/Not Resolved]
  - Micturition urgency [Not Recovered/Not Resolved]
  - Sleep deficit [Not Recovered/Not Resolved]
  - Memory impairment [Not Recovered/Not Resolved]
  - Tooth disorder [Not Recovered/Not Resolved]
  - Crepitations [Not Recovered/Not Resolved]
  - Musculoskeletal disorder [Not Recovered/Not Resolved]
  - Bone lesion [Unknown]
  - Central nervous system lesion [Unknown]
  - Dysphagia [Not Recovered/Not Resolved]
  - Arthropod bite [Unknown]
  - Cellulitis [Unknown]
  - Inappropriate schedule of product administration [Not Recovered/Not Resolved]
  - Pain of skin [Not Recovered/Not Resolved]
  - Hair texture abnormal [Unknown]
  - Injection site discolouration [Unknown]
  - Hyperaesthesia [Unknown]
  - Electric shock sensation [Unknown]
  - Tropical spastic paresis [Unknown]
  - Erectile dysfunction [Not Recovered/Not Resolved]
  - Muscle atrophy [Not Recovered/Not Resolved]
  - Stress [Unknown]
  - Chikungunya virus infection [Unknown]
  - Limb discomfort [Unknown]
  - Dysstasia [Not Recovered/Not Resolved]
  - Pruritus [Unknown]
  - Malaise [Not Recovered/Not Resolved]
  - Insomnia [Not Recovered/Not Resolved]
  - Paraesthesia [Not Recovered/Not Resolved]

NARRATIVE: CASE EVENT DATE: 20170101
